FAERS Safety Report 7206787-7 (Version None)
Quarter: 2010Q4

REPORT INFORMATION
  Report Type: 
  Country: None (occurrence: None)
  Receive Date: 20101217
  Receipt Date: 20101213
  Transmission Date: 20110411
  Serious: Yes (Hospitalization, Disabling, Other)
  Sender: FDA-Public Use
  Company Number: 2010SP004869

PATIENT
  Age: 48 Year
  Sex: Female
  Weight: 72.5755 kg

DRUGS (1)
  1. NUVARING [Suspect]
     Indication: CONTRACEPTION
     Dates: start: 20040101, end: 20080501

REACTIONS (19)
  - ABDOMINAL PAIN [None]
  - ARTHROPOD BITE [None]
  - CEREBRAL ISCHAEMIA [None]
  - CEREBROVASCULAR ACCIDENT [None]
  - DYSPEPSIA [None]
  - FALL [None]
  - FRACTURE DISPLACEMENT [None]
  - GASTROOESOPHAGEAL REFLUX DISEASE [None]
  - HAEMATURIA [None]
  - HUMERUS FRACTURE [None]
  - HYPERTENSION [None]
  - HYPOAESTHESIA [None]
  - JOINT EFFUSION [None]
  - MERALGIA PARAESTHETICA [None]
  - PELVIC FRACTURE [None]
  - PULMONARY EMBOLISM [None]
  - TRICUSPID VALVE INCOMPETENCE [None]
  - ULNA FRACTURE [None]
  - UPPER LIMB FRACTURE [None]
